FAERS Safety Report 6934910-8 (Version None)
Quarter: 2010Q3

REPORT INFORMATION
  Report Type: 
  Country: None (occurrence: None)
  Receive Date: 20100821
  Receipt Date: 20100809
  Transmission Date: 20110219
  Serious: Yes (Other)
  Sender: FDA-Public Use
  Company Number: GXKR2010GR07023

PATIENT
  Age: 49 Year
  Sex: Male

DRUGS (6)
  1. ISONIAZID [Suspect]
     Indication: TUBERCULOSIS
     Route: 065
  2. RIFAMPICIN (NGX) [Suspect]
     Indication: TUBERCULOSIS
     Route: 065
  3. PYRAZINAMIDE [Suspect]
     Indication: TUBERCULOSIS
     Route: 065
  4. METHOTREXATE [Suspect]
     Indication: PSORIATIC ARTHROPATHY
     Dosage: INITIATED ONE YEAR EARLIER
     Route: 065
  5. INFLIXIMAB [Suspect]
     Indication: PSORIATIC ARTHROPATHY
     Dosage: 2-MONTHLY
     Route: 065
  6. STREPTOMYCIN [Suspect]
     Indication: TUBERCULOSIS
     Route: 065

REACTIONS (6)
  - IMMUNE RECONSTITUTION SYNDROME [None]
  - NECROSIS [None]
  - PERICARDIAL EFFUSION [None]
  - PERICARDITIS TUBERCULOUS [None]
  - PLEURAL EFFUSION [None]
  - TUBERCULOSIS [None]
